FAERS Safety Report 5310214-4 (Version None)
Quarter: 2007Q2

REPORT INFORMATION
  Report Type: 
  Country: None (occurrence: None)
  Receive Date: 20070427
  Receipt Date: 20070419
  Transmission Date: 20071010
  Serious: Yes (Other)
  Sender: FDA-Public Use
  Company Number: JP-ROCHE-484777

PATIENT
  Age: 47 Year
  Sex: Female

DRUGS (6)
  1. TAMIFLU [Suspect]
     Route: 048
     Dates: start: 20070221, end: 20070221
  2. CLARITHROMYCIN [Concomitant]
     Route: 048
     Dates: start: 20070221, end: 20070226
  3. CHLORPHENIRAMINE MALEATE [Concomitant]
     Dosage: DRUG REPORTED AS NEOMALLERMIN, GENERIC: D-CHLORPHENIRAMINE MALEATE.
     Route: 048
     Dates: start: 20070221, end: 20070223
  4. CHLOPHEDRIN S [Concomitant]
     Route: 048
     Dates: start: 20070221, end: 20070223
  5. MUCOTRON [Concomitant]
     Route: 048
     Dates: start: 20070221, end: 20070226
  6. COCARL [Concomitant]
     Route: 048

REACTIONS (2)
  - CONVULSION [None]
  - LOSS OF CONSCIOUSNESS [None]
